FAERS Safety Report 8505820 (Version 2)
Quarter: 2013Q1

REPORT INFORMATION
  Report Type: Spontaneous
  Country: DE (occurrence: DE)
  Receive Date: 20120412
  Receipt Date: 20130201
  Transmission Date: 20140127
  Serious: Yes (Other)
  Sender: FDA-Public Use
  Company Number: DE-PFIZER INC-2012089162

PATIENT
  Age: 75 Year
  Sex: Male

DRUGS (2)
  1. CAVERJECT IMPULSE [Suspect]
     Dosage: UNK
  2. CAVERJECT [Suspect]
     Dosage: UNK

REACTIONS (1)
  - Hepatitis C [Unknown]
